FAERS Safety Report 5857390-2 (Version None)
Quarter: 2008Q3

REPORT INFORMATION
  Report Type: 
  Country: None (occurrence: None)
  Receive Date: 20080826
  Receipt Date: 20080813
  Transmission Date: 20090109
  Serious: Yes (Life-Threatening)
  Sender: FDA-Public Use
  Company Number: US-RANBAXY-2008RR-17370

PATIENT

DRUGS (14)
  1. CITALOPRAM 20MG TABLETS [Suspect]
     Indication: DEPRESSION
     Dosage: 20 MG, QD
  2. FLUCONAZOLE [Suspect]
     Dosage: 200 MG, QD
  3. DAPSONE [Concomitant]
     Dosage: 100 MG, QD
  4. ACYCLOVIR [Concomitant]
     Dosage: 800 MG, BID
  5. ESOMEPRAZOLE [Concomitant]
     Dosage: 20 MG, QD
  6. DEXAMETHASONE TAB [Concomitant]
     Dosage: 2.5 MG, QD
  7. ZOLPIDEM [Concomitant]
     Dosage: 12.5 MG, PRN
  8. LOSARTAN/HYDROCHLOROTHIAZIDE [Concomitant]
  9. PHENYTOIN [Concomitant]
     Dosage: 300 MG, QD
  10. OLANZAPINE [Concomitant]
     Indication: DEPRESSION
     Dosage: 2.5 MG, QD
  11. VINCRISTINE [Concomitant]
     Indication: LYMPHOCYTIC LEUKAEMIA
  12. METHOTREXATE SODIUM [Concomitant]
     Indication: LYMPHOCYTIC LEUKAEMIA
     Route: 037
  13. PREDNISONE [Concomitant]
     Indication: LYMPHOCYTIC LEUKAEMIA
  14. IMATINIB MESYLATE [Concomitant]
     Indication: LYMPHOCYTIC LEUKAEMIA

REACTIONS (2)
  - DRUG INTERACTION [None]
  - SEROTONIN SYNDROME [None]
